FAERS Safety Report 7747625-3 (Version None)
Quarter: 2011Q3

REPORT INFORMATION
  Report Type: 
  Country: None (occurrence: None)
  Receive Date: 20110913
  Receipt Date: 20110906
  Transmission Date: 20111222
  Serious: Yes (Other)
  Sender: FDA-Public Use
  Company Number: BA-BAYER-2011-083612

PATIENT
  Age: 70 Year
  Sex: Female
  Weight: 86 kg

DRUGS (1)
  1. AVELOX [Suspect]
     Dosage: 400 MG, ONCE
     Route: 048
     Dates: start: 20081027, end: 20081029

REACTIONS (7)
  - SWOLLEN TONGUE [None]
  - DIZZINESS [None]
  - DYSPNOEA [None]
  - DIPLOPIA [None]
  - AMNESIA [None]
  - ATRIAL FIBRILLATION [None]
  - VOMITING [None]
